FAERS Safety Report 4706461-2 (Version None)
Quarter: 2005Q3

REPORT INFORMATION
  Report Type: 
  Country: None (occurrence: None)
  Receive Date: 20050705
  Receipt Date: 20050531
  Transmission Date: 20060218
  Serious: Yes (Other)
  Sender: FDA-Public Use
  Company Number: CA-GLAXOSMITHKLINE-A0564885A

PATIENT
  Age: 56 Year
  Sex: Female

DRUGS (2)
  1. PAXIL [Suspect]
     Indication: DRUG USE FOR UNKNOWN INDICATION
     Dosage: 20MG PER DAY
  2. XANAX [Concomitant]

REACTIONS (8)
  - ARTHRALGIA [None]
  - DIZZINESS [None]
  - DRUG WITHDRAWAL SYNDROME [None]
  - FALL [None]
  - HEADACHE [None]
  - INSOMNIA [None]
  - MYALGIA [None]
  - PARAESTHESIA [None]
